FAERS Safety Report 13196532 (Version 2)
Quarter: 2017Q1

REPORT INFORMATION
  Report Type: Spontaneous
  Country: JP (occurrence: JP)
  Receive Date: 20170208
  Receipt Date: 20170213
  Transmission Date: 20170428
  Serious: Yes (Hospitalization, Other)
  Sender: FDA-Public Use
  Company Number: JP-PFIZER INC-2017032439

PATIENT
  Age: 90 Year
  Sex: Male

DRUGS (2)
  1. ATORVASTATIN CALCIUM HYDRATE [Suspect]
     Active Substance: ATORVASTATIN CALCIUM
     Dosage: 10 MG, 1X/DAY
     Route: 048
  2. LIPITOR [Suspect]
     Active Substance: ATORVASTATIN CALCIUM
     Dosage: ONCE DAILY, AFTER DINNER
     Route: 048
     Dates: start: 2007

REACTIONS (2)
  - Rhabdomyolysis [Unknown]
  - Influenza [Unknown]

NARRATIVE: CASE EVENT DATE: 20170117
